FAERS Safety Report 7545357-8 (Version None)
Quarter: 2011Q2

REPORT INFORMATION
  Report Type: 
  Country: None (occurrence: None)
  Receive Date: 20110524
  Receipt Date: 20110316
  Transmission Date: 20111010
  Serious: No
  Sender: FDA-Public Use
  Company Number: 027622

PATIENT
  Sex: Male
  Weight: 93 kg

DRUGS (14)
  1. MERCAPTOPURINE [Concomitant]
  2. AMLODIPINE [Concomitant]
  3. FLOVENT [Concomitant]
  4. CIMZIA [Suspect]
     Indication: CROHN'S DISEASE
     Dosage: (2 SHOTS INDUCTION DOSE SUBCUTANEOUS) ; (400 MG 1X/MONTH, 2 SHOTS 200 MG EACH SUBCUTANEOUS)
     Route: 058
     Dates: start: 20100501
  5. CIMZIA [Suspect]
     Indication: CROHN'S DISEASE
     Dosage: (2 SHOTS INDUCTION DOSE SUBCUTANEOUS) ; (400 MG 1X/MONTH, 2 SHOTS 200 MG EACH SUBCUTANEOUS)
     Route: 058
     Dates: start: 20100610
  6. CENTRUM SILVER /01292501/ [Concomitant]
  7. FINASTERIDE [Concomitant]
  8. MELATONIN [Concomitant]
  9. WARFARIN SODIUM [Concomitant]
  10. CARDURA //639301/ [Concomitant]
  11. LISINOPRIL [Concomitant]
  12. ASACOL [Concomitant]
  13. ASTELIN [Concomitant]
  14. NORPACE [Concomitant]

REACTIONS (3)
  - PAIN [None]
  - FEELING ABNORMAL [None]
  - ASTHENIA [None]
